FAERS Safety Report 5371550-9 (Version None)
Quarter: 2007Q2

REPORT INFORMATION
  Report Type: 
  Country: None (occurrence: None)
  Receive Date: 20070625
  Receipt Date: 20070625
  Transmission Date: 20071010
  Serious: Yes (Hospitalization)
  Sender: FDA-Public Use
  Company Number: None

PATIENT
  Age: 46 Year
  Sex: Male

DRUGS (1)
  1. AMITRIPTYLINE HCL [Suspect]
     Indication: PAIN
     Dosage: 50MG HS PO
     Route: 048
     Dates: start: 20061002, end: 20061008

REACTIONS (1)
  - DYSTONIA [None]
